FAERS Safety Report 12771060 (Version 1)
Quarter: 2016Q3

REPORT INFORMATION
  Report Type: Spontaneous
  Country: AU (occurrence: AU)
  Receive Date: 20160922
  Receipt Date: 20160922
  Transmission Date: 20161109
  Serious: Yes (Other)
  Sender: FDA-Public Use
  Company Number: AU-BIOGEN-2016BI00293172

PATIENT
  Age: 50 Year
  Sex: Female

DRUGS (1)
  1. PLEGRIDY [Suspect]
     Active Substance: PEGINTERFERON BETA-1A
     Indication: MULTIPLE SCLEROSIS
     Route: 058
     Dates: start: 20151105, end: 20151105

REACTIONS (8)
  - Suicidal ideation [Unknown]
  - Vomiting [Unknown]
  - Influenza like illness [Unknown]
  - Depression [Unknown]
  - Face oedema [Unknown]
  - Nausea [Unknown]
  - Pulmonary oedema [Unknown]
  - Localised oedema [Unknown]

NARRATIVE: CASE EVENT DATE: 201511
